FAERS Safety Report 9834380 (Version 3)
Quarter: 2014Q1

REPORT INFORMATION
  Report Type: Spontaneous
  Country: US (occurrence: US)
  Receive Date: 20140122
  Receipt Date: 20140207
  Transmission Date: 20141002
  Serious: Yes (Hospitalization)
  Sender: FDA-Public Use
  Company Number: US-AMGEN-USASP2014003933

PATIENT
  Age: 28 Year
  Sex: Female

DRUGS (8)
  1. ENBREL [Suspect]
     Indication: RHEUMATOID ARTHRITIS
     Dosage: 50 MG, QWK
     Route: 058
  2. HUMIRA [Concomitant]
     Dosage: UNK
     Dates: start: 2004, end: 2004
  3. LAMICTAL [Concomitant]
     Indication: DEPRESSION
     Dosage: 200 MG, QD
     Route: 048
  4. BENTYL [Concomitant]
     Indication: IRRITABLE BOWEL SYNDROME
     Dosage: 10 MG, QD PRN
     Route: 048
  5. ZONISAMIDE [Concomitant]
     Indication: PAIN
     Dosage: 100 MG, QD
     Route: 048
  6. TRAZODONE [Concomitant]
     Indication: SLEEP DISORDER
     Dosage: 100 MG, QHS
     Route: 048
  7. OXYCODONE / ACETAMINOPHEN [Concomitant]
     Indication: PAIN
     Dosage: 5/325, UNK, Q4H
     Route: 048
  8. MORPHINE [Concomitant]
     Indication: PAIN
     Dosage: 30 MG, QD
     Route: 048

REACTIONS (12)
  - Disorientation [Not Recovered/Not Resolved]
  - Procedural complication [Not Recovered/Not Resolved]
  - Diarrhoea [Not Recovered/Not Resolved]
  - Constipation [Not Recovered/Not Resolved]
  - Stress [Not Recovered/Not Resolved]
  - Musculoskeletal disorder [Not Recovered/Not Resolved]
  - Local swelling [Not Recovered/Not Resolved]
  - Neck pain [Not Recovered/Not Resolved]
  - Musculoskeletal pain [Not Recovered/Not Resolved]
  - Joint swelling [Not Recovered/Not Resolved]
  - Pain in extremity [Not Recovered/Not Resolved]
  - Arthralgia [Not Recovered/Not Resolved]
